FAERS Safety Report 8852122 (Version 1)
Quarter: 2012Q4

REPORT INFORMATION
  Report Type: Spontaneous
  Country: DK (occurrence: None)
  Receive Date: 20121017
  Receipt Date: 20121017
  Transmission Date: 20130627
  Serious: Yes (Other)
  Sender: FDA-Public Use
  Company Number: 2012MA012276

PATIENT
  Age: 48 Year
  Sex: Male

DRUGS (4)
  1. OXALIPLATIN [Suspect]
     Indication: CHEMOTHERAPY
     Route: 042
     Dates: start: 20080305, end: 20081020
  2. IRINOTECAN HYDROCHLORIDE [Suspect]
     Indication: CHEMOTHERAPY
  3. FLUOROURACIL (FLUOROURACIL) [Suspect]
     Indication: CHEMOTHERAPY
  4. FOLINIC ACID [Suspect]
     Indication: CHEMOTHERAPY

REACTIONS (9)
  - Renal impairment [None]
  - Feeling cold [None]
  - Vein pain [None]
  - Decreased appetite [None]
  - Sinusitis [None]
  - Diarrhoea [None]
  - Neuropathy peripheral [None]
  - Hypoaesthesia [None]
  - Diarrhoea [None]
